FAERS Safety Report 9332690 (Version 28)
Quarter: 2016Q2

REPORT INFORMATION
  Report Type: Report from Study
  Country: JP (occurrence: JP)
  Receive Date: 20130606
  Receipt Date: 20160429
  Transmission Date: 20160815
  Serious: Yes (Hospitalization, Other)
  Sender: FDA-Public Use
  Company Number: PHHY2013JP057188

PATIENT
  Age: 12 Year
  Sex: Male
  Weight: 23 kg

DRUGS (65)
  1. ACZ885 [Suspect]
     Active Substance: CANAKINUMAB
     Dosage: 87 MG, UNK
     Route: 058
     Dates: start: 20140501, end: 20140501
  2. ACZ885 [Suspect]
     Active Substance: CANAKINUMAB
     Dosage: 87 MG, UNK
     Route: 058
     Dates: start: 20140819, end: 20140819
  3. ACZ885 [Suspect]
     Active Substance: CANAKINUMAB
     Dosage: 90 MG, UNK
     Route: 058
     Dates: start: 20141209, end: 20141209
  4. ACZ885 [Suspect]
     Active Substance: CANAKINUMAB
     Dosage: 6 MG, UNK
     Route: 058
  5. ACZ885 [Suspect]
     Active Substance: CANAKINUMAB
     Dosage: UNK
     Route: 058
     Dates: start: 20150915
  6. PREDNISOLONE. [Concomitant]
     Active Substance: PREDNISOLONE
     Indication: INFLAMMATION
     Dosage: 1 MG, UNK
     Route: 048
     Dates: end: 20130910
  7. PREDONINE//PREDNISOLONE ACETATE [Concomitant]
     Indication: HYPER IGD SYNDROME
     Dosage: 10 MG, UNK
     Route: 065
     Dates: start: 20140405
  8. PREDONINE//PREDNISOLONE ACETATE [Concomitant]
     Dosage: 10 MG, UNK
     Route: 065
     Dates: start: 20141003, end: 20141006
  9. PREDONINE [Concomitant]
     Active Substance: PREDNISOLONE\PREDNISOLONE ACETATE\PREDNISOLONE SODIUM SUCCINATE
     Indication: PYREXIA
     Dosage: 2.5 MG, UNK
     Route: 048
     Dates: start: 20140725, end: 20140814
  10. PREDONINE [Concomitant]
     Active Substance: PREDNISOLONE\PREDNISOLONE ACETATE\PREDNISOLONE SODIUM SUCCINATE
     Dosage: 10 MG, QD
     Route: 048
     Dates: start: 20151003
  11. ACZ885 [Suspect]
     Active Substance: CANAKINUMAB
     Dosage: 87 MG, UNK
     Route: 058
     Dates: start: 20140916, end: 20140916
  12. ACZ885 [Suspect]
     Active Substance: CANAKINUMAB
     Dosage: 97.5 MG, UNK
     Route: 058
     Dates: start: 20150525
  13. PREDNISOLONE. [Concomitant]
     Active Substance: PREDNISOLONE
     Indication: HYPER IGD SYNDROME
     Dosage: 0.5 MG, UNK
     Route: 048
     Dates: start: 20130911, end: 20140624
  14. PREDONINE [Concomitant]
     Active Substance: PREDNISOLONE\PREDNISOLONE ACETATE\PREDNISOLONE SODIUM SUCCINATE
     Indication: HYPER IGD SYNDROME
     Dosage: 5 MG, QD
     Route: 048
     Dates: end: 20140724
  15. PREDONINE [Concomitant]
     Active Substance: PREDNISOLONE\PREDNISOLONE ACETATE\PREDNISOLONE SODIUM SUCCINATE
     Dosage: 10 MG, QD
     Route: 048
     Dates: start: 20150304, end: 20150305
  16. ROCEPHIN [Concomitant]
     Active Substance: CEFTRIAXONE SODIUM
     Indication: HYPER IGD SYNDROME
     Dosage: 2 G, UNK
     Route: 065
     Dates: start: 20140417, end: 20140421
  17. ACZ885 [Suspect]
     Active Substance: CANAKINUMAB
     Dosage: 87 MG, UNK
     Route: 058
     Dates: start: 20140624, end: 20140624
  18. ACZ885 [Suspect]
     Active Substance: CANAKINUMAB
     Dosage: 90 MG, UNK
     Route: 058
     Dates: start: 20150203, end: 20150203
  19. PREDONINE//PREDNISOLONE ACETATE [Concomitant]
     Indication: PYREXIA
     Dosage: 10 MG, UNK
     Route: 065
     Dates: end: 20140419
  20. PREDONINE [Concomitant]
     Active Substance: PREDNISOLONE\PREDNISOLONE ACETATE\PREDNISOLONE SODIUM SUCCINATE
     Dosage: 10 MG, UNK
     Route: 048
     Dates: start: 20150924
  21. ACZ885 [Suspect]
     Active Substance: CANAKINUMAB
     Dosage: 87 MG, QD
     Route: 058
     Dates: start: 20140403, end: 20140403
  22. ACZ885 [Suspect]
     Active Substance: CANAKINUMAB
     Dosage: 87 MG, UNK
     Route: 058
     Dates: start: 20140529, end: 20140529
  23. ACZ885 [Suspect]
     Active Substance: CANAKINUMAB
     Dosage: 90 MG, UNK
     Route: 058
     Dates: start: 20150430, end: 20150430
  24. GLAKAY [Concomitant]
     Active Substance: MENATETRENONE
     Indication: PROPHYLAXIS
  25. PREDNISOLONE. [Concomitant]
     Active Substance: PREDNISOLONE
     Dosage: 4 MG, UNK
     Route: 048
     Dates: start: 20140815, end: 20141014
  26. PREDNISOLONE. [Concomitant]
     Active Substance: PREDNISOLONE
     Dosage: 5 MG, UNK
     Dates: start: 20150927
  27. PREDONINE//PREDNISOLONE ACETATE [Concomitant]
     Dosage: 10 MG, UNK
     Route: 065
     Dates: start: 20150303, end: 20150303
  28. BACTRAMIN [Concomitant]
     Active Substance: SULFAMETHOXAZOLE\TRIMETHOPRIM
     Indication: PROPHYLAXIS
  29. ACZ885 [Suspect]
     Active Substance: CANAKINUMAB
     Indication: HYPER IGD SYNDROME
     Dosage: 40 MG, QD
     Route: 058
     Dates: start: 20130508, end: 20130508
  30. ACZ885 [Suspect]
     Active Substance: CANAKINUMAB
     Dosage: 40 MG, QD
     Route: 058
     Dates: start: 20130515, end: 20130515
  31. ACZ885 [Suspect]
     Active Substance: CANAKINUMAB
     Dosage: 84 MG, QD
     Route: 058
     Dates: start: 20130815, end: 20130815
  32. ACZ885 [Suspect]
     Active Substance: CANAKINUMAB
     Dosage: 87 MG, QD
     Route: 058
     Dates: start: 20140206, end: 20140206
  33. ANAKINRA [Suspect]
     Active Substance: ANAKINRA
     Indication: PRODUCT USED FOR UNKNOWN INDICATION
     Dosage: UNK
     Route: 065
  34. BAKTAR [Concomitant]
     Active Substance: SULFAMETHOXAZOLE\TRIMETHOPRIM
     Dosage: 1 G, UNK
     Route: 048
  35. PRIMPERAN                               /SCH/ [Concomitant]
     Indication: HYPER IGD SYNDROME
     Dosage: UNK
     Route: 065
     Dates: start: 20140417, end: 20140421
  36. ACZ885 [Suspect]
     Active Substance: CANAKINUMAB
     Dosage: 87 MG, QD
     Route: 058
     Dates: start: 20130910, end: 20130910
  37. ACZ885 [Suspect]
     Active Substance: CANAKINUMAB
     Dosage: 87 MG, UNK
     Route: 058
     Dates: start: 20141014, end: 20141014
  38. ACZ885 [Suspect]
     Active Substance: CANAKINUMAB
     Dosage: 87 MG, UNK
     Route: 058
     Dates: start: 20141111, end: 20141111
  39. ACZ885 [Suspect]
     Active Substance: CANAKINUMAB
     Dosage: 90 MG, UNK
     Route: 058
     Dates: start: 20150106, end: 20150106
  40. GLAKAY [Concomitant]
     Active Substance: MENATETRENONE
     Indication: OSTEOPOROSIS
     Dosage: 15 MG, QD
     Route: 048
  41. PREDNISOLONE. [Concomitant]
     Active Substance: PREDNISOLONE
     Dosage: 2 MG, UNK
     Route: 048
     Dates: start: 20140725, end: 20140814
  42. PREDNISOLONE. [Concomitant]
     Active Substance: PREDNISOLONE
     Dosage: 5 MG, UNK
     Dates: start: 20160420, end: 20160424
  43. PREDONINE//PREDNISOLONE ACETATE [Concomitant]
     Dosage: 10 MG, UNK
     Route: 065
     Dates: start: 20141103, end: 20141106
  44. PREDONINE//PREDNISOLONE ACETATE [Concomitant]
     Dosage: 10 MG, UNK
     Route: 065
     Dates: start: 20141223, end: 20141225
  45. PREDONINE [Concomitant]
     Active Substance: PREDNISOLONE\PREDNISOLONE ACETATE\PREDNISOLONE SODIUM SUCCINATE
     Dosage: 10 MG, QD
     Route: 048
     Dates: start: 20150303, end: 20150303
  46. BAKTAR [Concomitant]
     Active Substance: SULFAMETHOXAZOLE\TRIMETHOPRIM
     Indication: INFECTION PROPHYLAXIS
     Dosage: 18 DF, UNK
     Route: 048
  47. ACZ885 [Suspect]
     Active Substance: CANAKINUMAB
     Dosage: 84 MG, QD
     Route: 058
     Dates: start: 20130718, end: 20130718
  48. ACZ885 [Suspect]
     Active Substance: CANAKINUMAB
     Dosage: 87 MG, QD
     Route: 058
     Dates: start: 20131010, end: 20131010
  49. ACZ885 [Suspect]
     Active Substance: CANAKINUMAB
     Dosage: 87 MG, QD
     Route: 058
     Dates: start: 20131210, end: 20131210
  50. ACZ885 [Suspect]
     Active Substance: CANAKINUMAB
     Dosage: 87 MG, QD
     Route: 058
     Dates: start: 20140109, end: 20140109
  51. ACZ885 [Suspect]
     Active Substance: CANAKINUMAB
     Dosage: 87 MG, QD
     Route: 058
     Dates: start: 20140306, end: 20140306
  52. ACZ885 [Suspect]
     Active Substance: CANAKINUMAB
     Dosage: 90 MG, UNK
     Route: 058
     Dates: start: 20150331, end: 20150331
  53. PREDNISOLONE. [Concomitant]
     Active Substance: PREDNISOLONE
     Dosage: 10 MG, UNK
     Route: 048
     Dates: start: 20150923, end: 20150926
  54. PREDONINE [Concomitant]
     Active Substance: PREDNISOLONE\PREDNISOLONE ACETATE\PREDNISOLONE SODIUM SUCCINATE
     Dosage: 20 MG, QD
     Route: 048
     Dates: start: 20150622
  55. ACZ885 [Suspect]
     Active Substance: CANAKINUMAB
     Dosage: 80 MG, QD
     Route: 058
     Dates: start: 20130619, end: 20130619
  56. ACZ885 [Suspect]
     Active Substance: CANAKINUMAB
     Dosage: 87 MG, QD
     Route: 058
     Dates: start: 20131107, end: 20131107
  57. ACZ885 [Suspect]
     Active Substance: CANAKINUMAB
     Dosage: 87 MG, UNK
     Route: 058
     Dates: start: 20140724, end: 20140724
  58. ACZ885 [Suspect]
     Active Substance: CANAKINUMAB
     Dosage: 90 MG, UNK
     Route: 058
     Dates: start: 20150303, end: 20150303
  59. PREDNISOLONE. [Concomitant]
     Active Substance: PREDNISOLONE
     Dosage: 5 MG, UNK
     Route: 048
     Dates: start: 20141003, end: 20141012
  60. PREDNISOLONE. [Concomitant]
     Active Substance: PREDNISOLONE
     Dosage: 3 MG, QD
     Route: 048
     Dates: start: 20141014
  61. PREDONINE//PREDNISOLONE ACETATE [Concomitant]
     Dosage: 10 UNK, UNK
     Route: 065
     Dates: start: 20150924
  62. PREDONINE [Concomitant]
     Active Substance: PREDNISOLONE\PREDNISOLONE ACETATE\PREDNISOLONE SODIUM SUCCINATE
     Dosage: 10 MG, QD
     Route: 048
     Dates: start: 20141223
  63. PREDONINE [Concomitant]
     Active Substance: PREDNISOLONE\PREDNISOLONE ACETATE\PREDNISOLONE SODIUM SUCCINATE
     Dosage: 5 MG, QD
     Route: 048
     Dates: start: 20150306, end: 20150308
  64. PREDONINE [Concomitant]
     Active Substance: PREDNISOLONE\PREDNISOLONE ACETATE\PREDNISOLONE SODIUM SUCCINATE
     Dosage: 3.5 MG, QD
     Route: 048
     Dates: start: 20150309
  65. BACTRAMIN [Concomitant]
     Active Substance: SULFAMETHOXAZOLE\TRIMETHOPRIM
     Indication: INFECTION PROPHYLAXIS
     Dosage: 1 G, BID
     Route: 048

REACTIONS (54)
  - Vomiting [Recovered/Resolved]
  - Nausea [Recovered/Resolved]
  - Pyrexia [Recovered/Resolved]
  - Nasal congestion [Recovered/Resolved]
  - Vomiting [Recovered/Resolved]
  - Blood sodium increased [Unknown]
  - Stomatitis [Recovered/Resolved]
  - Nasal congestion [Recovered/Resolved]
  - Vomiting [Recovering/Resolving]
  - Rhinorrhoea [Recovered/Resolved]
  - Tongue disorder [Recovering/Resolving]
  - Oropharyngeal pain [Unknown]
  - Gastroenteritis [Recovered/Resolved]
  - Gastroenteritis viral [Recovered/Resolved]
  - Dehydration [Recovered/Resolved]
  - Vomiting [Recovered/Resolved]
  - Nasopharyngitis [Recovered/Resolved]
  - Chills [Recovered/Resolved]
  - Tooth development disorder [Unknown]
  - Therapeutic response decreased [Unknown]
  - Vomiting [Recovered/Resolved]
  - Conjunctival hyperaemia [Recovered/Resolved]
  - Concomitant disease aggravated [Recovering/Resolving]
  - Tooth abscess [Recovered/Resolved]
  - Gingivitis [Unknown]
  - Asthenia [Unknown]
  - Nasopharyngitis [Recovered/Resolved]
  - Oropharyngeal pain [Recovered/Resolved]
  - Pharyngitis [Recovered/Resolved]
  - Pharyngitis [Recovered/Resolved]
  - Headache [Recovered/Resolved]
  - Diarrhoea [Recovered/Resolved]
  - Decreased appetite [Recovered/Resolved]
  - Malaise [Recovered/Resolved]
  - Headache [Recovered/Resolved]
  - Headache [Recovered/Resolved]
  - Fall [Unknown]
  - Blood lactate dehydrogenase increased [Unknown]
  - Nausea [Recovered/Resolved]
  - Headache [Recovered/Resolved]
  - Vomiting [Recovered/Resolved]
  - Oropharyngeal pain [Recovered/Resolved]
  - Decreased appetite [Recovered/Resolved]
  - Pharyngitis [Recovering/Resolving]
  - Tibia fracture [Recovered/Resolved]
  - C-reactive protein increased [Unknown]
  - Inflammation [Recovered/Resolved]
  - Periodontitis [Recovered/Resolved]
  - Pyrexia [Recovered/Resolved]
  - Malaise [Recovered/Resolved]
  - Upper respiratory tract infection [Recovered/Resolved]
  - Vomiting [Recovered/Resolved]
  - Blood cholesterol increased [Unknown]
  - Gingival swelling [Unknown]

NARRATIVE: CASE EVENT DATE: 201305
